FAERS Safety Report 16966022 (Version 3)
Quarter: 2020Q2

REPORT INFORMATION
  Report Type: Spontaneous
  Country: US (occurrence: US)
  Receive Date: 20191028
  Receipt Date: 20200521
  Transmission Date: 20200713
  Serious: No
  Sender: FDA-Public Use
  Company Number: US-PFIZER INC-2019461072

PATIENT
  Age: 29 Year
  Sex: Male
  Weight: 95.25 kg

DRUGS (2)
  1. SOLU-CORTEF [Suspect]
     Active Substance: HYDROCORTISONE SODIUM SUCCINATE
     Dosage: 20 MG, 2X/DAY [500MG BOTTLE, DOSE 20MG INJECTION TWICE A DAY]
  2. SOLU-CORTEF [Suspect]
     Active Substance: HYDROCORTISONE SODIUM SUCCINATE
     Indication: ADRENAL INSUFFICIENCY
     Dosage: 100 MG/ML

REACTIONS (3)
  - Drug ineffective [Unknown]
  - Off label use [Unknown]
  - Suspected counterfeit product [Unknown]
